FAERS Safety Report 21488572 (Version 1)
Quarter: 2022Q4

REPORT INFORMATION
  Report Type: Spontaneous
  Country: US (occurrence: US)
  Receive Date: 20221021
  Receipt Date: 20221021
  Transmission Date: 20230113
  Serious: No
  Sender: FDA-Public Use
  Company Number: US-CELLTRION INC.-2022US006413

PATIENT

DRUGS (1)
  1. INFLECTRA [Suspect]
     Active Substance: INFLIXIMAB-DYYB
     Indication: Colitis
     Dosage: 5 MG/KG, CYCLIC EVERY 2 WEEKS, 2 DOSES; EVERY 4 WEEKS, 1 DOSE; EVERY 8 WEEKS, 3 DOSES
     Route: 065

REACTIONS (1)
  - Off label use [Unknown]
